FAERS Safety Report 18186693 (Version 1)
Quarter: 2020Q3

REPORT INFORMATION
  Report Type: Spontaneous
  Country: US (occurrence: US)
  Receive Date: 20200824
  Receipt Date: 20200824
  Transmission Date: 20201103
  Serious: No
  Sender: FDA-Public Use
  Company Number: US-PFIZER INC-2020323075

PATIENT
  Age: 63 Year
  Sex: Female

DRUGS (1)
  1. IBRANCE [Suspect]
     Active Substance: PALBOCICLIB
     Indication: BREAST CANCER FEMALE
     Dosage: 125 MG, CYCLIC (125 MG QC (ONCE DAILY) X 21 DAYS Q (EVERY) 28 DAYS)
     Dates: start: 20191108

REACTIONS (3)
  - Alopecia [Unknown]
  - Diarrhoea [Unknown]
  - White blood cell count decreased [Unknown]
